FAERS Safety Report 9170281 (Version 1)
Quarter: 2013Q1

REPORT INFORMATION
  Report Type: Spontaneous
  Country: US (occurrence: None)
  Receive Date: 20130307
  Receipt Date: 20130307
  Transmission Date: 20140127
  Serious: Yes (Other)
  Sender: FDA-Public Use
  Company Number: AUR-APL-2013-01921

PATIENT
  Age: 78 Year
  Sex: Female

DRUGS (7)
  1. SIMVASTATIN (SIMVASTATIN) [Suspect]
     Indication: BLOOD CHOLESTEROL ABNORMAL
  2. LIPITOR (ATORVASTATIN CALCIUM) [Suspect]
     Indication: BLOOD CHOLESTEROL ABNORMAL
  3. RED YEAST RICE [Suspect]
     Indication: BLOOD CHOLESTEROL ABNORMAL
  4. COLESTYRAMINE [Suspect]
     Indication: BLOOD CHOLESTEROL ABNORMAL
  5. CRESTOR (ROSUVASTATIN) [Suspect]
     Indication: BLOOD CHOLESTEROL ABNORMAL
  6. PRAVACHOL [Suspect]
     Indication: BLOOD CHOLESTEROL ABNORMAL
  7. LOVASTATIN [Suspect]
     Indication: BLOOD CHOLESTEROL ABNORMAL

REACTIONS (6)
  - Chest pain [None]
  - Myalgia [None]
  - Blood cholesterol increased [None]
  - Herpes zoster [None]
  - Dizziness [None]
  - Malaise [None]
